FAERS Safety Report 16654038 (Version 1)
Quarter: 2019Q3

REPORT INFORMATION
  Report Type: Spontaneous
  Country: DE (occurrence: DE)
  Receive Date: 20190731
  Receipt Date: 20190731
  Transmission Date: 20191004
  Serious: Yes (Other)
  Sender: FDA-Public Use
  Company Number: PHHY2019DE175078

PATIENT
  Age: 63 Year
  Sex: Male

DRUGS (2)
  1. TAMSULOSINHYDROCHLORID HEXAL [Suspect]
     Active Substance: TAMSULOSIN HYDROCHLORIDE
     Indication: PROSTATOMEGALY
     Dosage: 1 DF, QD
     Route: 065
  2. TAMSULOSIN HYDROCHLORIDE. [Suspect]
     Active Substance: TAMSULOSIN HYDROCHLORIDE
     Indication: PROSTATOMEGALY
     Dosage: UNK
     Route: 065

REACTIONS (4)
  - Product storage error [Unknown]
  - Drug ineffective [Unknown]
  - Urinary tract obstruction [Unknown]
  - Product colour issue [Unknown]

NARRATIVE: CASE EVENT DATE: 2019
